FAERS Safety Report 7480897-1 (Version None)
Quarter: 2011Q2

REPORT INFORMATION
  Report Type: 
  Country: None (occurrence: None)
  Receive Date: 20110512
  Receipt Date: 20110512
  Transmission Date: 20111010
  Serious: No
  Sender: FDA-Public Use
  Company Number: None

PATIENT
  Age: 83 Year
  Sex: Female
  Weight: 58.9676 kg

DRUGS (5)
  1. CRANACTIN [Concomitant]
  2. ASPIRIN [Concomitant]
  3. ROPINIROLE [Suspect]
     Indication: RESTLESS LEGS SYNDROME
     Dosage: 1 TABLE@BEDTIME DAILY
     Dates: start: 20100701, end: 20110301
  4. METOPROL [Concomitant]
  5. LEVOTHYROXINE SODIUM [Concomitant]

REACTIONS (3)
  - SPEECH DISORDER [None]
  - LOOSE TOOTH [None]
  - OEDEMA MOUTH [None]
